FAERS Safety Report 18454256 (Version 2)
Quarter: 2020Q4

REPORT INFORMATION
  Report Type: Report from Study
  Country: CA (occurrence: CA)
  Receive Date: 20201102
  Receipt Date: 20201203
  Transmission Date: 20210114
  Serious: Yes (Other)
  Sender: FDA-Public Use
  Company Number: CA-REGENERON PHARMACEUTICALS, INC.-2020-86128

PATIENT

DRUGS (1)
  1. EYLEA [Suspect]
     Active Substance: AFLIBERCEPT
     Indication: RETINAL VEIN OCCLUSION
     Dosage: UNKNOWN TOTAL NUMBER OF DOSES OF EYLEA, CURRENTLY RECEIVING TREATMENT IN LEFT EYE

REACTIONS (2)
  - Visual impairment [Unknown]
  - Vitreous disorder [Unknown]
